FAERS Safety Report 25547209 (Version 2)
Quarter: 2025Q3

REPORT INFORMATION
  Report Type: Spontaneous
  Country: JP (occurrence: JP)
  Receive Date: 20250714
  Receipt Date: 20250715
  Transmission Date: 20251021
  Serious: Yes (Hospitalization)
  Sender: AMGEN
  Company Number: JP-DSJP-DS-2024-102975-

PATIENT
  Age: 84 Year
  Sex: Male

DRUGS (3)
  1. DENOSUMAB [Suspect]
     Active Substance: DENOSUMAB
     Indication: Osteoporosis
     Dosage: 60 MILLIGRAM, Q6MO
     Route: 058
  2. ELDECALCITOL [Concomitant]
     Active Substance: ELDECALCITOL
     Indication: Osteoporosis
     Dosage: 0.75 UG, QD
     Route: 048
     Dates: start: 20231107, end: 20231121
  3. DEGARELIX ACETATE [Concomitant]
     Active Substance: DEGARELIX ACETATE
     Indication: Prostate cancer
     Route: 065

REACTIONS (1)
  - Hypocalcaemia [Recovered/Resolved]

NARRATIVE: CASE EVENT DATE: 20231115
